FAERS Safety Report 12395132 (Version 1)
Quarter: 2016Q2

REPORT INFORMATION
  Report Type: Spontaneous
  Country: US (occurrence: US)
  Receive Date: 20160523
  Receipt Date: 20160523
  Transmission Date: 20160815
  Serious: No
  Sender: FDA-Public Use
  Company Number: US-BAYER-2016-092103

PATIENT
  Sex: Male

DRUGS (22)
  1. PHENERGAN [Concomitant]
     Active Substance: PROMETHAZINE HYDROCHLORIDE
     Indication: MIGRAINE
     Dosage: 1 DF, PRN
     Route: 048
  2. LISINOPRIL. [Concomitant]
     Active Substance: LISINOPRIL
  3. PRASUGREL [Concomitant]
     Active Substance: PRASUGREL
     Dosage: 1 DF, QD
  4. VENTOLIN HFA [Concomitant]
     Active Substance: ALBUTEROL SULFATE
     Indication: WHEEZING
     Dosage: 2 PUFFS EVERY SIX HOURS AS NEEDED
     Route: 045
  5. IMITREX [Concomitant]
     Active Substance: SUMATRIPTAN SUCCINATE
  6. LYRICA [Concomitant]
     Active Substance: PREGABALIN
  7. ISOSORBIDE MONONITRATE. [Concomitant]
     Active Substance: ISOSORBIDE MONONITRATE
     Dosage: 1 DF, QD
     Route: 048
  8. FLEXERIL [Concomitant]
     Active Substance: CYCLOBENZAPRINE HYDROCHLORIDE
     Indication: MUSCLE SPASMS
     Dosage: 1 DF, TID AS NEEDED
     Route: 048
  9. COREG [Concomitant]
     Active Substance: CARVEDILOL
     Dosage: 1 DF, BID
     Route: 048
  10. PRAVACHOL [Concomitant]
     Active Substance: PRAVASTATIN SODIUM
     Dosage: 1 DF, QD
     Route: 048
  11. GLUCOPHAGE [Concomitant]
     Active Substance: METFORMIN HYDROCHLORIDE
     Dosage: 1 DF, BID
     Route: 048
  12. GLUCOTROL [Concomitant]
     Active Substance: GLIPIZIDE
     Dosage: 1 DF, BID
     Route: 048
  13. DULOXETINE. [Concomitant]
     Active Substance: DULOXETINE
     Dosage: 1 DF, QD
     Route: 048
  14. ALEVE [Suspect]
     Active Substance: NAPROXEN SODIUM
  15. APRESOLINE HYDROCHLORIDE [Concomitant]
     Active Substance: HYDRALAZINE HYDROCHLORIDE
     Dosage: 1 DF, BID
     Route: 048
  16. NITROSTAT [Concomitant]
     Active Substance: NITROGLYCERIN
  17. XANAX [Concomitant]
     Active Substance: ALPRAZOLAM
  18. BAYER LOW DOSE [Concomitant]
     Active Substance: ASPIRIN
     Dosage: 2 DF, BID
     Route: 048
  19. HYDRODIURIL [Concomitant]
     Active Substance: HYDROCHLOROTHIAZIDE
     Dosage: 1 DF, QD
     Route: 048
  20. COZAAR [Concomitant]
     Active Substance: LOSARTAN POTASSIUM
     Dosage: 1 DF, QD
     Route: 048
  21. FLONASE [Concomitant]
     Active Substance: FLUTICASONE PROPIONATE
     Dosage: 2 SPRAYS, QD AS NEEDED
     Route: 045
  22. KEFLEX [Concomitant]
     Active Substance: CEPHALEXIN

REACTIONS (1)
  - Drug hypersensitivity [None]
